FAERS Safety Report 7802139-7 (Version None)
Quarter: 2011Q4

REPORT INFORMATION
  Report Type: 
  Country: None (occurrence: None)
  Receive Date: 20111007
  Receipt Date: 20111001
  Transmission Date: 20120403
  Serious: Yes (Hospitalization)
  Sender: FDA-Public Use
  Company Number: US-AMGEN-USASP2011030223

PATIENT
  Age: 62 Year
  Sex: Female

DRUGS (2)
  1. ENBREL [Suspect]
     Indication: RHEUMATOID ARTHRITIS
     Dosage: UNK
     Dates: start: 20090101
  2. ENBREL [Suspect]
     Dosage: 50 MG, QWK
     Dates: start: 20101108

REACTIONS (6)
  - OEDEMA PERIPHERAL [None]
  - CARTILAGE ATROPHY [None]
  - INJECTION SITE ERYTHEMA [None]
  - INJECTION SITE RASH [None]
  - DERMATITIS CONTACT [None]
  - PRURITUS [None]
